FAERS Safety Report 8538484-X (Version None)
Quarter: 2012Q3

REPORT INFORMATION
  Report Type: 
  Country: None (occurrence: None)
  Receive Date: 20120718
  Receipt Date: 20120718
  Transmission Date: 20120928
  Serious: Yes (Hospitalization)
  Sender: FDA-Public Use
  Company Number: None

PATIENT
  Sex: Male
  Weight: 73.4827 kg

DRUGS (1)
  1. XOPENEX [Suspect]
     Indication: CHRONIC OBSTRUCTIVE PULMONARY DISEASE
     Dosage: 0.63 MG/3 ML SOLUTION AMPULES 2-3X DAILY ORAL INHALATION
     Route: 055
     Dates: start: 20060101, end: 20120101

REACTIONS (2)
  - ORAL MUCOSAL EXFOLIATION [None]
  - ORAL DISCOMFORT [None]
